FAERS Safety Report 12145965 (Version 1)
Quarter: 2016Q1

REPORT INFORMATION
  Report Type: Spontaneous
  Country: US (occurrence: None)
  Receive Date: 20160303
  Receipt Date: 20160303
  Transmission Date: 20160526
  Serious: Yes (Hospitalization)
  Sender: FDA-Public Use
  Company Number: None

PATIENT
  Age: 58 Year
  Sex: Male

DRUGS (17)
  1. ASPIRIN. [Concomitant]
     Active Substance: ASPIRIN
  2. METOPROLOL. [Concomitant]
     Active Substance: METOPROLOL
  3. PLAVIX [Concomitant]
     Active Substance: CLOPIDOGREL BISULFATE
  4. VASOTEC [Concomitant]
     Active Substance: ENALAPRIL MALEATE
  5. EFUDEX [Concomitant]
     Active Substance: FLUOROURACIL
  6. METFORMIN [Concomitant]
     Active Substance: METFORMIN HYDROCHLORIDE
  7. LIPITOR [Concomitant]
     Active Substance: ATORVASTATIN CALCIUM
  8. DIGOXIN. [Concomitant]
     Active Substance: DIGOXIN
  9. SOFOSBUVIR 400MG GILEAD [Suspect]
     Active Substance: SOFOSBUVIR
     Indication: HEPATITIS C
     Dosage: 1XDAILY
     Route: 048
     Dates: start: 20151123
  10. AZELAIC ACID. [Concomitant]
     Active Substance: AZELAIC ACID
  11. CUPROPION [Concomitant]
  12. CELEXA [Concomitant]
     Active Substance: CITALOPRAM HYDROBROMIDE
  13. LASIX [Concomitant]
     Active Substance: FUROSEMIDE
  14. VICTOZA [Concomitant]
     Active Substance: LIRAGLUTIDE
  15. DACLATASVIR  60MG [Concomitant]
     Active Substance: DACLATASVIR
     Dosage: 1XDAILY
     Route: 048
     Dates: start: 20151123
  16. ANTARA [Concomitant]
     Active Substance: FENOFIBRATE
  17. ELIQUIS [Concomitant]
     Active Substance: APIXABAN

REACTIONS (6)
  - Anxiety [None]
  - Atrial flutter [None]
  - Tachycardia [None]
  - Dyspnoea [None]
  - Oedema peripheral [None]
  - Fatigue [None]

NARRATIVE: CASE EVENT DATE: 20160219
